FAERS Safety Report 10154824 (Version 1)
Quarter: 2014Q2

REPORT INFORMATION
  Report Type: Spontaneous
  Country: TR (occurrence: None)
  Receive Date: 20140502
  Receipt Date: 20140502
  Transmission Date: 20141212
  Serious: Yes (Hospitalization)
  Sender: FDA-Public Use
  Company Number: SYM-2014-20200

PATIENT
  Age: 9 Year
  Sex: Male

DRUGS (4)
  1. METRONIDAZOLE (METRONIDAZOLE) [Suspect]
     Indication: UPPER RESPIRATORY TRACT INFECTION
  2. CLARITHROMYCIN (CLARITHROMYCIN) [Suspect]
     Indication: UPPER RESPIRATORY TRACT INFECTION
  3. IBUPROFEN (IBUPROFEN) [Suspect]
     Indication: UPPER RESPIRATORY TRACT INFECTION
  4. PROCAINE BENZYLPENICILLIN [Suspect]
     Indication: UPPER RESPIRATORY TRACT INFECTION

REACTIONS (1)
  - Toxic epidermal necrolysis [None]
